FAERS Safety Report 7996372-1 (Version None)
Quarter: 2011Q4

REPORT INFORMATION
  Report Type: 
  Country: None (occurrence: None)
  Receive Date: 20111220
  Receipt Date: 20111209
  Transmission Date: 20120403
  Serious: Yes (Hospitalization)
  Sender: FDA-Public Use
  Company Number: JP-MERCK-1007USA01254

PATIENT
  Age: 49 Year
  Sex: Female

DRUGS (7)
  1. FOSAMAX [Suspect]
     Indication: OSTEOPOROSIS
     Route: 048
     Dates: start: 20071011, end: 20100326
  2. CRESTOR [Concomitant]
     Route: 048
     Dates: start: 20071011
  3. ACTONEL [Suspect]
     Indication: OSTEOPOROSIS
     Route: 048
     Dates: start: 20070628, end: 20071010
  4. OMEPRAZOLE [Concomitant]
     Route: 048
     Dates: start: 20070612
  5. PREDNISOLONE [Concomitant]
     Route: 048
     Dates: start: 20090416
  6. NABOAL [Concomitant]
     Route: 048
     Dates: start: 20080710
  7. ADALAT [Concomitant]
     Route: 048
     Dates: start: 20091027

REACTIONS (1)
  - FEMUR FRACTURE [None]
